FAERS Safety Report 8919258 (Version 1)
Quarter: 2012Q4

REPORT INFORMATION
  Report Type: Report from Study
  Country: US (occurrence: US)
  Receive Date: 20121121
  Receipt Date: 20121121
  Transmission Date: 20130627
  Serious: Yes (Hospitalization)
  Sender: FDA-Public Use
  Company Number: US-EISAI INC-E7389-03247-CLI-US

PATIENT
  Age: 75 Year
  Sex: Male
  Weight: 71 kg

DRUGS (8)
  1. E7389 (BOLD) [Suspect]
     Indication: NON-SMALL CELL LUNG CANCER
     Route: 041
     Dates: start: 20121101, end: 20121101
  2. E7389 (BOLD) [Suspect]
     Route: 041
     Dates: start: 20121025, end: 20121025
  3. LISINOPRIL [Concomitant]
     Indication: HYPERTENSION
     Route: 048
     Dates: start: 20000414
  4. DILTIAZEM [Concomitant]
     Indication: HYPERTENSION
     Dates: start: 20000414
  5. METFORMIN HYDROCHLORIDE [Concomitant]
     Indication: DIABETES
     Route: 048
     Dates: start: 20040719
  6. SIMVASTATIN [Concomitant]
     Indication: HYPERCHOLESTEROLEMIA
     Route: 048
     Dates: start: 20020612
  7. HYDROCHLOROTHIAZIDE [Concomitant]
     Indication: HYPERTENSION
     Route: 048
     Dates: start: 20000414
  8. PROPRANOLOL HCL [Concomitant]
     Indication: BENIGN ESSENTIAL TREMOR
     Route: 048
     Dates: start: 20050804

REACTIONS (1)
  - Embolism [Recovering/Resolving]
